FAERS Safety Report 5819917-6 (Version None)
Quarter: 2008Q3

REPORT INFORMATION
  Report Type: 
  Country: None (occurrence: None)
  Receive Date: 20080717
  Receipt Date: 20080711
  Transmission Date: 20090109
  Serious: Yes (Death, Hospitalization)
  Sender: FDA-Public Use
  Company Number: 163-21880-08060944

PATIENT
  Age: 74 Year
  Sex: Female

DRUGS (7)
  1. REVLIMID [Suspect]
     Indication: MULTIPLE MYELOMA
     Dosage: 25 MG, X21 DAYS EVERY 28 DAYS, ORAL; 12.5 MG, 1 IN 2 D, ORAL
     Route: 048
     Dates: start: 20080101, end: 20080201
  2. REVLIMID [Suspect]
     Indication: MULTIPLE MYELOMA
     Dosage: 25 MG, X21 DAYS EVERY 28 DAYS, ORAL; 12.5 MG, 1 IN 2 D, ORAL
     Route: 048
     Dates: start: 20070430
  3. DECADRON [Suspect]
     Indication: MULTIPLE MYELOMA
     Dosage: 20 MG, WEEKLY ON THURSDAYS,
  4. AREDIA [Concomitant]
  5. VICODIN [Concomitant]
  6. DIFLUCAN [Concomitant]
  7. CALCIUM (CALCIUM) [Concomitant]

REACTIONS (23)
  - BLOOD ALBUMIN DECREASED [None]
  - BLOOD POTASSIUM DECREASED [None]
  - BLOOD UREA INCREASED [None]
  - BONE LESION [None]
  - DECUBITUS ULCER [None]
  - DISEASE PROGRESSION [None]
  - DYSURIA [None]
  - GENERALISED OEDEMA [None]
  - HYPOGAMMAGLOBULINAEMIA [None]
  - MALNUTRITION [None]
  - MULTIPLE MYELOMA [None]
  - MUSCULOSKELETAL PAIN [None]
  - NEUROPATHY PERIPHERAL [None]
  - OEDEMA PERIPHERAL [None]
  - ORAL CANDIDIASIS [None]
  - PAIN [None]
  - PANCYTOPENIA [None]
  - PLEURAL DISORDER [None]
  - PNEUMOCOCCAL SEPSIS [None]
  - PRURITUS [None]
  - RESPIRATORY DISORDER [None]
  - SPINAL FRACTURE [None]
  - URINARY TRACT INFECTION [None]
